FAERS Safety Report 24669349 (Version 1)
Quarter: 2024Q4

REPORT INFORMATION
  Report Type: Spontaneous
  Country: US (occurrence: None)
  Receive Date: 20241127
  Receipt Date: 20241127
  Transmission Date: 20250115
  Serious: Yes (Hospitalization)
  Sender: Public
  Company Number: None

PATIENT
  Age: 52 Year
  Sex: Female
  Weight: 90.7 kg

DRUGS (3)
  1. CARBOPLATIN [Suspect]
     Active Substance: CARBOPLATIN
     Dates: end: 20240208
  2. FEMARA [Suspect]
     Active Substance: LETROZOLE
     Dates: end: 20241116
  3. TAXOL [Suspect]
     Active Substance: PACLITAXEL
     Dates: end: 20240208

REACTIONS (4)
  - Hypotension [None]
  - Sepsis [None]
  - Overdose [None]
  - Drug abuse [None]

NARRATIVE: CASE EVENT DATE: 20241117
